FAERS Safety Report 13537853 (Version 1)
Quarter: 2017Q2

REPORT INFORMATION
  Report Type: Spontaneous
  Country: US (occurrence: US)
  Receive Date: 20170511
  Receipt Date: 20170511
  Transmission Date: 20170830
  Serious: Yes (Other)
  Sender: FDA-Public Use
  Company Number: US-TEVA-768341USA

PATIENT
  Sex: Male

DRUGS (1)
  1. COPAXONE [Suspect]
     Active Substance: GLATIRAMER ACETATE
     Dosage: UNKNOWN FORM STRENGTH
     Dates: end: 201705

REACTIONS (2)
  - Central nervous system lesion [Not Recovered/Not Resolved]
  - JC virus infection [Not Recovered/Not Resolved]

NARRATIVE: CASE EVENT DATE: 201705
